FAERS Safety Report 21938000 (Version 1)
Quarter: 2023Q1

REPORT INFORMATION
  Report Type: Report from Study
  Country: US (occurrence: US)
  Receive Date: 20230201
  Receipt Date: 20230201
  Transmission Date: 20230417
  Serious: No
  Sender: FDA-Public Use
  Company Number: US-INCYTE CORPORATION-2021IN001695

PATIENT

DRUGS (5)
  1. PEMIGATINIB [Suspect]
     Active Substance: PEMIGATINIB
     Indication: Cholangiocarcinoma
     Dosage: 13.5 MILLIGRAM, QHS  (AT 8PM WITHOUT FOOD)
     Route: 048
     Dates: start: 20210213
  2. PEMIGATINIB [Suspect]
     Active Substance: PEMIGATINIB
     Dosage: 13.5 MILLIGRAM
     Route: 048
     Dates: start: 20210212
  3. PEMIGATINIB [Suspect]
     Active Substance: PEMIGATINIB
     Dosage: 13.5 MILLIGRAM (STARTED HER CURRENT CYCLE OF MEDICATION LITTLE LATER)
     Route: 048
  4. PEMIGATINIB [Suspect]
     Active Substance: PEMIGATINIB
     Dosage: 13.5 MILLIGRAM
     Route: 048
     Dates: start: 20210211
  5. PEMIGATINIB [Suspect]
     Active Substance: PEMIGATINIB
     Dosage: 9 MILLIGRAM
     Route: 048
     Dates: start: 20210211

REACTIONS (9)
  - Hepatic pain [Unknown]
  - Product availability issue [Unknown]
  - Oral pain [Unknown]
  - Weight decreased [Unknown]
  - Diarrhoea [Recovered/Resolved]
  - Alopecia [Unknown]
  - Blood phosphorus increased [Unknown]
  - Onychomadesis [Unknown]
  - Dry eye [Unknown]

NARRATIVE: CASE EVENT DATE: 20210201
